FAERS Safety Report 8839546 (Version 1)
Quarter: 2012Q4

REPORT INFORMATION
  Report Type: 
  Country: US (occurrence: US)
  Receive Date: 20121015
  Receipt Date: 20121015
  Transmission Date: 20130627
  Serious: Yes (Other)
  Sender: FDA-Public Use
  Company Number: PHEH2012US020081

PATIENT
  Age: 61 Year

DRUGS (1)
  1. ZOMETA [Suspect]

REACTIONS (4)
  - Osteonecrosis of jaw [Unknown]
  - Exposed bone in jaw [Unknown]
  - Glossodynia [Unknown]
  - Tongue injury [Unknown]
